FAERS Safety Report 13060320 (Version 1)
Quarter: 2016Q4

REPORT INFORMATION
  Report Type: Spontaneous
  Country: PT (occurrence: PT)
  Receive Date: 20161223
  Receipt Date: 20161223
  Transmission Date: 20170207
  Serious: Yes (Death)
  Sender: FDA-Public Use
  Company Number: US-ASTRAZENECA-2016SF35404

PATIENT

DRUGS (1)
  1. SYNAGIS [Suspect]
     Active Substance: PALIVIZUMAB
     Indication: PRODUCT USED FOR UNKNOWN INDICATION
     Route: 030

REACTIONS (1)
  - Death [Fatal]
